FAERS Safety Report 8883782 (Version 1)
Quarter: 2012Q4

REPORT INFORMATION
  Report Type: 
  Country: US (occurrence: US)
  Receive Date: 20121102
  Receipt Date: 20121102
  Transmission Date: 20130627
  Serious: No
  Sender: FDA-Public Use
  Company Number: US-ASTRAZENECA-2012SE80096

PATIENT
  Age: 56 Year
  Sex: Male

DRUGS (3)
  1. PULMICORT RESPULES [Suspect]
     Route: 055
  2. SYMBICORT PMDI [Suspect]
     Route: 055
  3. NEBULIZER [Concomitant]

REACTIONS (2)
  - Dyspnoea [Unknown]
  - Drug ineffective [Unknown]
